FAERS Safety Report 19775114 (Version 2)
Quarter: 2021Q3

REPORT INFORMATION
  Report Type: Report from Study
  Country: JP (occurrence: JP)
  Receive Date: 20210901
  Receipt Date: 20210907
  Transmission Date: 20211014
  Serious: Yes (Death, Other)
  Sender: FDA-Public Use
  Company Number: JP-SEAGEN-2021SGN04520

PATIENT
  Age: 78 Year
  Sex: Male
  Weight: 51.6 kg

DRUGS (1)
  1. BRENTUXIMAB VEDOTIN [Suspect]
     Active Substance: BRENTUXIMAB VEDOTIN
     Indication: ANGIOIMMUNOBLASTIC T-CELL LYMPHOMA STAGE IV
     Dosage: 1.8 MILLIGRAM/KILOGRAM
     Route: 050
     Dates: start: 20200610, end: 20210219

REACTIONS (1)
  - Death [Fatal]

NARRATIVE: CASE EVENT DATE: 20210610
